FAERS Safety Report 7823635-2 (Version None)
Quarter: 2011Q4

REPORT INFORMATION
  Report Type: 
  Country: None (occurrence: None)
  Receive Date: 20111019
  Receipt Date: 20111019
  Transmission Date: 20120403
  Serious: Yes (Other)
  Sender: FDA-Public Use
  Company Number: None

PATIENT
  Age: 5 Year
  Sex: Male
  Weight: 18.2 kg

DRUGS (2)
  1. ADVATE [Suspect]
     Indication: FACTOR VIII DEFICIENCY
     Dosage: 720 INTERNATIONAL UNITS
     Route: 040
  2. ADVATE [Concomitant]
     Dosage: 720 INTERNATIONAL UNITS
     Route: 040

REACTIONS (2)
  - EPISTAXIS [None]
  - LABORATORY TEST ABNORMAL [None]
